FAERS Safety Report 8235211-0 (Version None)
Quarter: 2012Q1

REPORT INFORMATION
  Report Type: 
  Country: None (occurrence: None)
  Receive Date: 20120326
  Receipt Date: 20120316
  Transmission Date: 20120608
  Serious: Yes (Hospitalization)
  Sender: FDA-Public Use
  Company Number: ES-JNJFOC-20120307614

PATIENT
  Sex: Male
  Weight: 125.7 kg

DRUGS (9)
  1. CITALOPRAM HYDROBROMIDE [Concomitant]
     Indication: DEPRESSION
     Dates: start: 20091218
  2. ALPRAZOLAM [Concomitant]
     Route: 065
     Dates: start: 20111208, end: 20120130
  3. ZIPRASIDONE HYDROCHLORIDE [Concomitant]
     Indication: INSOMNIA
     Dates: start: 20120312
  4. ALPRAZOLAM [Concomitant]
     Indication: ANXIETY
     Route: 065
     Dates: start: 20120201, end: 20120229
  5. PALIPERIDONE [Suspect]
     Indication: SCHIZOPHRENIA
     Route: 030
     Dates: start: 20120309, end: 20120309
  6. PALIPERIDONE [Suspect]
     Route: 030
     Dates: start: 20111028
  7. ETUMINA [Concomitant]
     Indication: INSOMNIA
     Dates: start: 20120312
  8. DIAZEPAM [Concomitant]
     Indication: ANXIETY
     Route: 065
     Dates: start: 20120213, end: 20120313
  9. ALPRAZOLAM [Concomitant]
     Route: 065
     Dates: start: 20120301, end: 20120313

REACTIONS (1)
  - ANXIETY [None]
